FAERS Safety Report 8429792-1 (Version None)
Quarter: 2012Q2

REPORT INFORMATION
  Report Type: 
  Country: None (occurrence: None)
  Receive Date: 20120612
  Receipt Date: 20120529
  Transmission Date: 20120825
  Serious: Yes (Hospitalization, Other)
  Sender: FDA-Public Use
  Company Number: PT-CELGENEUS-130-50794-12053288

PATIENT
  Age: 68 Year
  Sex: Male

DRUGS (6)
  1. VIDAZA [Suspect]
     Route: 058
     Dates: start: 20101001
  2. PREDNISOLONE [Concomitant]
     Route: 065
     Dates: start: 20101201
  3. ESCITALOPRAM [Concomitant]
     Indication: DEPRESSION
     Route: 065
  4. ALLOPURINOL [Concomitant]
     Route: 065
  5. PREDNISOLONE [Concomitant]
     Route: 065
  6. BROMAZEPAM [Concomitant]
     Indication: DEPRESSION
     Route: 065

REACTIONS (3)
  - ATRIAL FLUTTER [None]
  - LOWER RESPIRATORY TRACT INFECTION [None]
  - URTICARIA [None]
